FAERS Safety Report 13521391 (Version 1)
Quarter: 2017Q2

REPORT INFORMATION
  Report Type: Spontaneous
  Country: US (occurrence: US)
  Receive Date: 20170508
  Receipt Date: 20170508
  Transmission Date: 20170830
  Serious: No
  Sender: FDA-Public Use
  Company Number: US-PFIZER INC-2017197267

PATIENT
  Age: 63 Year
  Sex: Female
  Weight: 64.86 kg

DRUGS (2)
  1. ADVIL MIGRAINE [Suspect]
     Active Substance: IBUPROFEN
     Indication: BACK PAIN
  2. ADVIL MIGRAINE [Suspect]
     Active Substance: IBUPROFEN
     Indication: MUSCLE SPASMS
     Dosage: 200MG CAPSULES/LIQUID PILL ONE IN THE MORNING ONE IN THE EVENING BY MOUTH
     Route: 048
     Dates: start: 20170501

REACTIONS (2)
  - Product use in unapproved indication [Not Recovered/Not Resolved]
  - Drug effect delayed [Unknown]

NARRATIVE: CASE EVENT DATE: 20170501
